FAERS Safety Report 8721795 (Version 2)
Quarter: 2014Q1

REPORT INFORMATION
  Report Type: Report from Study
  Country: AU (occurrence: AU)
  Receive Date: 20120814
  Receipt Date: 20140327
  Transmission Date: 20141002
  Serious: Yes (Hospitalization, Other)
  Sender: FDA-Public Use
  Company Number: AU-CELGENEUS-008-CCAZA-12042940

PATIENT
  Age: 76 Year
  Sex: Female
  Weight: 55.7 kg

DRUGS (14)
  1. AZACITIDINE INJECTABLE [Suspect]
     Indication: ACUTE MYELOID LEUKAEMIA
     Dosage: 75 MILLIGRAM/SQ. METER
     Route: 058
     Dates: start: 20120203, end: 20120209
  2. AZACITIDINE INJECTABLE [Suspect]
     Dosage: 75 MILLIGRAM/SQ. METER
     Route: 058
     Dates: start: 20120413, end: 20120419
  3. AZACITIDINE INJECTABLE [Suspect]
     Dosage: 75 MILLIGRAM/SQ. METER
     Route: 058
     Dates: start: 20120511, end: 20120517
  4. AZACITIDINE INJECTABLE [Suspect]
     Dosage: 75 MILLIGRAM/SQ. METER
     Route: 058
     Dates: start: 20120608, end: 20120614
  5. POSACONAZOLE [Concomitant]
     Indication: ANTIFUNGAL PROPHYLAXIS
     Dosage: 600 MILLIGRAM
     Route: 048
     Dates: start: 20120127
  6. KETOTIFEN [Concomitant]
     Indication: ANTIALLERGIC THERAPY
     Dosage: 1 MILLIGRAM
     Route: 048
     Dates: start: 2007
  7. KETOTIFEN [Concomitant]
     Indication: RASH
  8. PANADOL OSTEO [Concomitant]
     Indication: OSTEOARTHRITIS
     Dosage: 4 TABLET
     Route: 048
     Dates: start: 20120127
  9. BLOOD [Concomitant]
     Indication: PRODUCT USED FOR UNKNOWN INDICATION
     Route: 065
     Dates: start: 201204
  10. PRAMIN [Concomitant]
     Indication: PROPHYLAXIS OF NAUSEA AND VOMITING
     Route: 048
     Dates: start: 20120228
  11. COLOXYL C SENNA [Concomitant]
     Indication: CONSTIPATION PROPHYLAXIS
     Dosage: 4 TABLET
     Route: 048
     Dates: start: 20120127
  12. RANITIDINE [Concomitant]
     Indication: GASTROOESOPHAGEAL REFLUX PROPHYLAXIS
     Dosage: 300 MILLIGRAM
     Route: 048
     Dates: start: 20120330
  13. VALTREX [Concomitant]
     Indication: ANTIFUNGAL PROPHYLAXIS
     Dosage: 500 MILLIGRAM
     Route: 048
     Dates: start: 20120127, end: 20120517
  14. VALTREX [Concomitant]
     Indication: ORAL HERPES
     Dosage: 2 GRAM
     Route: 048
     Dates: start: 20120517

REACTIONS (7)
  - Colitis [Recovered/Resolved]
  - Dehydration [Unknown]
  - Hypotension [Unknown]
  - Dehydration [Recovered/Resolved]
  - Febrile neutropenia [Recovered/Resolved]
  - Febrile neutropenia [Recovered/Resolved]
  - Febrile neutropenia [Recovered/Resolved]
